FAERS Safety Report 14592094 (Version 1)
Quarter: 2018Q1

REPORT INFORMATION
  Report Type: Spontaneous
  Country: US (occurrence: US)
  Receive Date: 20180302
  Receipt Date: 20180302
  Transmission Date: 20180509
  Serious: No
  Sender: FDA-Public Use
  Company Number: US-NOVOPROD-543531

PATIENT
  Age: 78 Year
  Sex: Female
  Weight: 101.6 kg

DRUGS (1)
  1. VICTOZA [Suspect]
     Active Substance: LIRAGLUTIDE
     Indication: PRODUCT USED FOR UNKNOWN INDICATION
     Dosage: UNK
     Route: 058
     Dates: end: 201611

REACTIONS (4)
  - Feeling jittery [Unknown]
  - Diarrhoea [Unknown]
  - Abdominal pain [Unknown]
  - Drug hypersensitivity [Unknown]
